FAERS Safety Report 10741237 (Version 1)
Quarter: 2015Q1

REPORT INFORMATION
  Report Type: Spontaneous
  Country: US (occurrence: None)
  Receive Date: 20150123
  Receipt Date: 20150123
  Transmission Date: 20150721
  Serious: Yes (Other)
  Sender: FDA-Public Use
  Company Number: CIO15003090

PATIENT
  Sex: Male

DRUGS (1)
  1. CREST 3D WHITE LUXE MULTI-CARE WHTING ORAL RINSE, VERSION/FLAVOR UNK(ETHANOL UNK UNK, HYDROGEN PEROXIDE 15%) LIQUID, 15ML [Suspect]
     Active Substance: HYDROGEN PEROXIDE
     Dosage: INTRAORAL
     Dates: start: 2012, end: 20150113

REACTIONS (5)
  - Condition aggravated [None]
  - Sensitivity of teeth [None]
  - Toothache [None]
  - Tooth discolouration [None]
  - Tooth extraction [None]
